FAERS Safety Report 16307137 (Version 1)
Quarter: 2019Q2

REPORT INFORMATION
  Report Type: Spontaneous
  Country: US (occurrence: US)
  Receive Date: 20190514
  Receipt Date: 20190514
  Transmission Date: 20190711
  Serious: Yes (Hospitalization)
  Sender: FDA-Public Use
  Company Number: US-ASTRAZENECA-2019SE70472

PATIENT
  Age: 742 Month
  Sex: Female
  Weight: 57.2 kg

DRUGS (2)
  1. VENTILIN [Concomitant]
  2. SYMBICORT [Suspect]
     Active Substance: BUDESONIDE\FORMOTEROL FUMARATE DIHYDRATE
     Indication: ASTHMA
     Dosage: UNKNOWN UG, 2 PUFFS TWICE A DAY
     Route: 055

REACTIONS (11)
  - Diabetic neuropathy [Not Recovered/Not Resolved]
  - Asthma [Recovering/Resolving]
  - Cough [Not Recovered/Not Resolved]
  - Weight decreased [Not Recovered/Not Resolved]
  - Back injury [Unknown]
  - Pneumonia [Not Recovered/Not Resolved]
  - Diabetes mellitus [Not Recovered/Not Resolved]
  - Chronic obstructive pulmonary disease [Not Recovered/Not Resolved]
  - Musculoskeletal disorder [Unknown]
  - Arthropathy [Not Recovered/Not Resolved]
  - Fall [Unknown]

NARRATIVE: CASE EVENT DATE: 201903
